FAERS Safety Report 22398996 (Version 4)
Quarter: 2024Q1

REPORT INFORMATION
  Report Type: Spontaneous
  Country: FR (occurrence: FR)
  Receive Date: 20230602
  Receipt Date: 20240228
  Transmission Date: 20240409
  Serious: Yes (Life-Threatening, Hospitalization, Other)
  Sender: FDA-Public Use
  Company Number: FR-CELGENE-FRA-2017027057

PATIENT
  Age: 17 Year
  Sex: Female
  Weight: 52 kg

DRUGS (38)
  1. THALIDOMIDE [Suspect]
     Active Substance: THALIDOMIDE
     Indication: Chronic cutaneous lupus erythematosus
     Dosage: 50 MG, QD
     Route: 048
  2. THALIDOMIDE [Suspect]
     Active Substance: THALIDOMIDE
     Dosage: 100 MG, QD
     Route: 048
     Dates: start: 20160613
  3. THALIDOMIDE [Suspect]
     Active Substance: THALIDOMIDE
     Dosage: 100 MG
     Route: 048
  4. THALIDOMIDE [Suspect]
     Active Substance: THALIDOMIDE
     Dosage: 50 MG, QD
     Route: 048
  5. THALIDOMIDE [Suspect]
     Active Substance: THALIDOMIDE
     Dosage: 50 MG QOD
     Dates: start: 20160928
  6. THALIDOMIDE [Suspect]
     Active Substance: THALIDOMIDE
     Dosage: 28 TABLETS,1X?TOTAL
     Route: 048
     Dates: start: 20161127, end: 20161127
  7. PLAQUENIL [Suspect]
     Active Substance: HYDROXYCHLOROQUINE SULFATE
     Indication: Chronic cutaneous lupus erythematosus
     Dosage: 2 DOSAGE FORMS?45 TABLETS?2 TABS/D
     Route: 048
     Dates: start: 201512, end: 20161127
  8. PLAQUENIL [Suspect]
     Active Substance: HYDROXYCHLOROQUINE SULFATE
  9. NIFEDIPINE [Suspect]
     Active Substance: NIFEDIPINE
     Indication: Product used for unknown indication
     Dosage: 30 MG PER DAY, TABLET, IF CHILBLAINS SUFFICIENT QUANTITY FOR 6 MONTHS
  10. NIFEDIPINE [Suspect]
     Active Substance: NIFEDIPINE
     Dosage: LP 30 1 PER DAY
  11. ALPRAZOLAM [Concomitant]
     Active Substance: ALPRAZOLAM
     Indication: Product used for unknown indication
     Dosage: 0.5 DF, QD
     Dates: start: 201611
  12. ALPRAZOLAM [Concomitant]
     Active Substance: ALPRAZOLAM
     Indication: Product used for unknown indication
     Dosage: 30 DF, 1X?TOTAL
     Dates: start: 20161127, end: 20161127
  13. ALPRAZOLAM [Concomitant]
     Active Substance: ALPRAZOLAM
  14. ALPRAZOLAM [Concomitant]
     Active Substance: ALPRAZOLAM
     Dosage: UNK
  15. ALPRAZOLAM [Concomitant]
     Active Substance: ALPRAZOLAM
     Dosage: UNK UNK,UNK
  16. ALPRAZOLAM [Concomitant]
     Active Substance: ALPRAZOLAM
     Dosage: UNK UNK,UNK
  17. ALPRAZOLAM [Concomitant]
     Active Substance: ALPRAZOLAM
     Dosage: UNK UNK,UNK
  18. ALPRAZOLAM [Concomitant]
     Active Substance: ALPRAZOLAM
     Dosage: UNK UNK,UNK
  19. ASPIRIN [Concomitant]
     Active Substance: ASPIRIN
     Indication: Product used for unknown indication
  20. DESOGESTREL [Concomitant]
     Active Substance: DESOGESTREL
     Indication: Product used for unknown indication
     Dosage: 1 TABLET TO BE STARTED ON THE FIRST DAY OF PERIOD AND TO BE CONTINUED 28 DAYS ON 28 DAYS
  21. CHLORMADINONE ACETATE [Concomitant]
     Active Substance: CHLORMADINONE ACETATE
     Indication: Product used for unknown indication
  22. ASPIRIN DL-LYSINE [Concomitant]
     Active Substance: ASPIRIN DL-LYSINE
     Indication: Product used for unknown indication
     Dosage: 1 BAG
  23. CHOLECALCIFEROL [Concomitant]
     Active Substance: CHOLECALCIFEROL
     Indication: Product used for unknown indication
     Dosage: 1 AMPOULE EVERY 15 DAYS DURING 2 MONTHS THEN 1 AMPOULE PER MONTH
  24. UNSPECIFIED INGREDIENT [Concomitant]
     Active Substance: UNSPECIFIED INGREDIENT
     Indication: Product used for unknown indication
     Dosage: AN ORAL CONTRACEPTIVE HAS BEEN PRESCRIBED BUT HITHERTO NOT TAKEN
  25. CANNABIS SATIVA SUBSP. INDICA TOP [Concomitant]
     Active Substance: CANNABIS SATIVA SUBSP. INDICA TOP
     Indication: Product used for unknown indication
  26. XANAX [Concomitant]
     Active Substance: ALPRAZOLAM
     Indication: Product used for unknown indication
     Dosage: 1 TABLET AT 8:00 , 1 TABLET AT 12:00, 1 TABLET AT 19:00
  27. XANAX [Concomitant]
     Active Substance: ALPRAZOLAM
     Dosage: 1 TABLET AT 8:00HOUR , 1 TABLET AT 12:00, 1 TABLET AT 19:00
  28. XANAX [Concomitant]
     Active Substance: ALPRAZOLAM
  29. XANAX [Concomitant]
     Active Substance: ALPRAZOLAM
     Dosage: 1 TABLET AT 8:00 , 1 TABLET AT 12:00, 1 TABLET AT 19:00
  30. DUPHALAC [Concomitant]
     Active Substance: LACTULOSE
     Indication: Product used for unknown indication
     Dosage: 1 SACHET AT 8 :00, 1 SACHET AT 12 :00 , 1 SACHET AT 19 :00
  31. DUPHALAC [Concomitant]
     Active Substance: LACTULOSE
     Dosage: 1 SACHET AT 8 :00, 1 SACHET AT 12 :00 , 1 SACHET AT 19 :00
  32. DUPHALAC [Concomitant]
     Active Substance: LACTULOSE
     Dosage: 1 SACHET AT 8 :00, 1 SACHET AT 12 :00 , 1 SACHET AT 19 :00
  33. IMOVANE [Concomitant]
     Active Substance: ZOPICLONE
     Indication: Product used for unknown indication
     Dosage: 1 COMP / TABLET)
  34. RISPERDAL [Concomitant]
     Active Substance: RISPERIDONE
     Indication: Product used for unknown indication
     Dosage: 1 TABLET AT 8:00, 1 TABLET AT 19:00
  35. ASPIRIN [Concomitant]
     Active Substance: ASPIRIN
     Indication: Product used for unknown indication
     Dosage: 100 MG/DAY
  36. MINERAL OIL [Concomitant]
     Active Substance: MINERAL OIL
     Indication: Product used for unknown indication
     Dosage: LANSOYL SINGLE DOSE 1 DOSE AT 8:00, 1 DOSE AT 12:00, 1 DOSE AT 19:00
  37. TROPATEPINE HYDROCHLORIDE [Concomitant]
     Active Substance: TROPATEPINE HYDROCHLORIDE
     Indication: Product used for unknown indication
     Dosage: 1 TABLET AT 8:00, 1 TABLET AT 19:00
  38. ACETAMINOPHEN [Concomitant]
     Active Substance: ACETAMINOPHEN
     Indication: Product used for unknown indication
     Dosage: 1G/6H IF REQUIRED?AS NECESSARY

REACTIONS (35)
  - Arthralgia [Not Recovered/Not Resolved]
  - Depression [Recovering/Resolving]
  - Vitamin D deficiency [Unknown]
  - Suicide attempt [Unknown]
  - Hallucination, auditory [Unknown]
  - Suicidal ideation [Unknown]
  - Toxicity to various agents [Unknown]
  - Cardiac arrest [Recovering/Resolving]
  - Delirium [Unknown]
  - Major depression [Recovered/Resolved]
  - Sleep apnoea syndrome [Unknown]
  - Systemic lupus erythematosus [Unknown]
  - Loss of consciousness [Unknown]
  - Emotional distress [Unknown]
  - Psychotic disorder [Unknown]
  - Sleep disorder [Unknown]
  - Drug intolerance [Recovered/Resolved]
  - Iron deficiency [Unknown]
  - Back pain [Unknown]
  - Fatigue [Unknown]
  - Overdose [Unknown]
  - Rash erythematous [Unknown]
  - Diarrhoea [Unknown]
  - Frostbite [Recovering/Resolving]
  - Rash [Unknown]
  - Malaise [Unknown]
  - Peripheral coldness [Recovering/Resolving]
  - Condition aggravated [Unknown]
  - Amnesia [Unknown]
  - Chillblains [Unknown]
  - Cyanosis [Unknown]
  - Mental disorder [Unknown]
  - Psychomotor retardation [Unknown]
  - Unevaluable event [Unknown]
  - Off label use [Unknown]

NARRATIVE: CASE EVENT DATE: 20161001
